FAERS Safety Report 7582979-2 (Version None)
Quarter: 2011Q2

REPORT INFORMATION
  Report Type: 
  Country: None (occurrence: None)
  Receive Date: 20110527
  Receipt Date: 20110127
  Transmission Date: 20111010
  Serious: Yes (Hospitalization, Other)
  Sender: FDA-Public Use
  Company Number: US201005000626

PATIENT
  Sex: Male
  Weight: 102 kg

DRUGS (16)
  1. EXENATIDE UNK STRENGTH PEN, DISPOSABLE DEVICE (EXENATIDE PEN (UNKNOWN [Concomitant]
  2. TESTOSTERONE (TESTOSTERONE) CREAM [Concomitant]
  3. ZAROXOLYN [Concomitant]
  4. TRILIPIX [Concomitant]
  5. MAG-OX (MAGNESIUM OXIDE) [Concomitant]
  6. TIAZAC [Concomitant]
  7. TYLENOL /00020001/ (PARACETAMOL) [Concomitant]
  8. COUMADIN [Concomitant]
  9. VIAGRA [Concomitant]
  10. INDOCIN [Concomitant]
  11. BYETTA [Suspect]
     Dosage: SUBCUTANEOUS, 10 UG, 2/D
     Route: 058
     Dates: start: 20070401, end: 20080101
  12. BYETTA [Suspect]
     Dosage: SUBCUTANEOUS, 10 UG, 2/D
     Route: 058
     Dates: start: 20100121
  13. SPIRIVA [Concomitant]
  14. TEMAZEPAM [Concomitant]
  15. ASCORBIC ACID [Concomitant]
  16. FISH OIL (FISH OIL) [Concomitant]

REACTIONS (3)
  - PANCREATITIS [None]
  - OFF LABEL USE [None]
  - RENAL FAILURE [None]
